FAERS Safety Report 16799097 (Version 1)
Quarter: 2019Q3

REPORT INFORMATION
  Report Type: Spontaneous
  Country: US (occurrence: US)
  Receive Date: 20190912
  Receipt Date: 20190912
  Transmission Date: 20191005
  Serious: Yes (Hospitalization, Other)
  Sender: FDA-Public Use
  Company Number: US-ALEMBIC PHARMACUETICALS LIMITED-2019SCAL000621

PATIENT

DRUGS (1)
  1. DOXYCYCLINE. [Suspect]
     Active Substance: DOXYCYCLINE
     Indication: PRODUCT USED FOR UNKNOWN INDICATION
     Dosage: 100 MILLIGRAM, EVERY 12 HOURS
     Route: 048

REACTIONS (7)
  - Rash erythematous [Unknown]
  - Lymphadenopathy [Unknown]
  - Rash morbilliform [Unknown]
  - Acute generalised exanthematous pustulosis [Unknown]
  - Lymph node pain [Unknown]
  - Pruritus [Unknown]
  - Rash pustular [Unknown]
